FAERS Safety Report 13910340 (Version 1)
Quarter: 2017Q3

REPORT INFORMATION
  Report Type: Report from Study
  Country: US (occurrence: US)
  Receive Date: 20170828
  Receipt Date: 20170828
  Transmission Date: 20171127
  Serious: No
  Sender: FDA-Public Use
  Company Number: US-KAMADA LIMITED-2017US006283

PATIENT

DRUGS (4)
  1. GLASSIA [Suspect]
     Active Substance: .ALPHA.1-PROTEINASE INHIBITOR HUMAN
     Indication: ACUTE GRAFT VERSUS HOST DISEASE
     Dosage: UNK
     Route: 065
     Dates: start: 2016
  2. SIROLIMUS. [Suspect]
     Active Substance: SIROLIMUS
  3. STEROIDS [Suspect]
     Active Substance: UNSPECIFIED INGREDIENT
  4. JAKAFI [Suspect]
     Active Substance: RUXOLITINIB

REACTIONS (3)
  - Depression [Unknown]
  - Off label use [Unknown]
  - Drug ineffective for unapproved indication [Recovered/Resolved]

NARRATIVE: CASE EVENT DATE: 20161023
